FAERS Safety Report 20875826 (Version 1)
Quarter: 2022Q2

REPORT INFORMATION
  Report Type: Spontaneous
  Country: JP (occurrence: JP)
  Receive Date: 20220526
  Receipt Date: 20220526
  Transmission Date: 20220721
  Serious: Yes (Hospitalization, Other)
  Sender: FDA-Public Use
  Company Number: JP-LUPIN PHARMACEUTICALS INC.-2022-07539

PATIENT
  Age: 66 Year
  Sex: Female

DRUGS (2)
  1. VANCOMYCIN [Interacting]
     Active Substance: VANCOMYCIN
     Indication: Postoperative wound infection
     Dosage: 2.5 GRAM, QD
     Route: 065
  2. PIPERACILLIN SODIUM\TAZOBACTAM SODIUM [Interacting]
     Active Substance: PIPERACILLIN SODIUM\TAZOBACTAM SODIUM
     Indication: Postoperative wound infection
     Dosage: 13.5 GRAM, QD
     Route: 065

REACTIONS (3)
  - Acute kidney injury [Recovered/Resolved]
  - Drug interaction [Unknown]
  - Off label use [Unknown]
